FAERS Safety Report 8389543-6 (Version None)
Quarter: 2012Q2

REPORT INFORMATION
  Report Type: 
  Country: None (occurrence: None)
  Receive Date: 20120528
  Receipt Date: 20120505
  Transmission Date: 20120825
  Serious: No
  Sender: FDA-Public Use
  Company Number: US-BAYER-2012-048104

PATIENT

DRUGS (6)
  1. NAPROXEN SODIUM [Suspect]
     Indication: ANALGESIC THERAPY
     Route: 048
  2. POTASSIUM CHLORIDE [Concomitant]
  3. VITAMIN D [Concomitant]
     Indication: PAIN IN EXTREMITY
  4. VITAMIN D [Concomitant]
     Indication: ARTHRALGIA
  5. ADVIL [Concomitant]
  6. VITAMIN D [Concomitant]

REACTIONS (1)
  - ARTHRALGIA [None]
